FAERS Safety Report 25637321 (Version 1)
Quarter: 2025Q3

REPORT INFORMATION
  Report Type: Spontaneous
  Country: US (occurrence: US)
  Receive Date: 20250804
  Receipt Date: 20250804
  Transmission Date: 20251020
  Serious: Yes (Life-Threatening, Hospitalization, Other)
  Sender: STRIDES
  Company Number: US-STRIDES ARCOLAB LIMITED-2025SP009697

PATIENT
  Age: 75 Year
  Sex: Male

DRUGS (1)
  1. SEVELAMER CARBONATE [Suspect]
     Active Substance: SEVELAMER CARBONATE
     Indication: Chronic kidney disease
     Route: 065

REACTIONS (6)
  - Dyspnoea [None]
  - Bronchial obstruction [None]
  - Foreign body aspiration [None]
  - Chest pain [Unknown]
  - Product deposit [Unknown]
  - Product solubility abnormal [Unknown]
